FAERS Safety Report 8500394-1 (Version None)
Quarter: 2012Q3

REPORT INFORMATION
  Report Type: 
  Country: None (occurrence: None)
  Receive Date: 20120705
  Receipt Date: 20120705
  Transmission Date: 20120928
  Serious: Yes (Hospitalization)
  Sender: FDA-Public Use
  Company Number: None

PATIENT
  Age: 81 Year
  Sex: Female
  Weight: 80 kg

DRUGS (10)
  1. CITALOPRAM HYDROBROMIDE [Concomitant]
  2. ALBUTEROL SULFATE AND IPRATROPIUM BROMIDE [Concomitant]
  3. WARFARIN SODIUM [Suspect]
     Indication: ATRIAL FIBRILLATION
     Dosage: PO
     Route: 048
  4. SANTYL [Concomitant]
  5. BISACODYL [Concomitant]
  6. NYSTATIN [Concomitant]
  7. QUETIAPINE [Concomitant]
  8. OMEPRAZOLE [Concomitant]
  9. DOCUSATE CALCIUM [Concomitant]
  10. ALLOPURINOL [Concomitant]

REACTIONS (5)
  - DECUBITUS ULCER [None]
  - HAEMORRHOIDAL HAEMORRHAGE [None]
  - PNEUMONIA [None]
  - SEPSIS [None]
  - INTERNATIONAL NORMALISED RATIO INCREASED [None]
